FAERS Safety Report 16466547 (Version 1)
Quarter: 2019Q2

REPORT INFORMATION
  Report Type: Spontaneous
  Country: FR (occurrence: FR)
  Receive Date: 20190623
  Receipt Date: 20190623
  Transmission Date: 20190711
  Serious: Yes (Other)
  Sender: FDA-Public Use
  Company Number: PHHY2019FR142799

PATIENT
  Age: 52 Year
  Sex: Male
  Weight: 71 kg

DRUGS (1)
  1. TACROLIMUS. [Suspect]
     Active Substance: TACROLIMUS
     Indication: RENAL TRANSPLANT
     Dosage: 6.5 OT, QD (6.50 UNK, ONCE DAILY)
     Route: 065
     Dates: start: 20180529

REACTIONS (1)
  - Gout [Not Recovered/Not Resolved]

NARRATIVE: CASE EVENT DATE: 20190520
